FAERS Safety Report 8599463-X (Version None)
Quarter: 2012Q3

REPORT INFORMATION
  Report Type: 
  Country: None (occurrence: None)
  Receive Date: 20120816
  Receipt Date: 20120808
  Transmission Date: 20120928
  Serious: No
  Sender: FDA-Public Use
  Company Number: US-ASTRAZENECA-2012SE56207

PATIENT
  Age: 46 Year
  Sex: Male

DRUGS (1)
  1. NEXIUM [Suspect]
     Route: 048

REACTIONS (5)
  - INTENTIONAL DRUG MISUSE [None]
  - GALLBLADDER DISORDER [None]
  - DRUG DOSE OMISSION [None]
  - BARRETT'S OESOPHAGUS [None]
  - ABDOMINAL DISCOMFORT [None]
